FAERS Safety Report 10237629 (Version 1)
Quarter: 2014Q2

REPORT INFORMATION
  Report Type: Spontaneous
  Country: BR (occurrence: BR)
  Receive Date: 20140616
  Receipt Date: 20140616
  Transmission Date: 20141212
  Serious: Yes (Other)
  Sender: FDA-Public Use
  Company Number: BR-AMGEN INC.-BRASP2014043872

PATIENT
  Age: 82 Year
  Sex: Female
  Weight: 45 kg

DRUGS (6)
  1. ENBREL [Suspect]
     Indication: RHEUMATOID ARTHRITIS
     Dosage: 50 MG, ONCE WEEKLY
     Route: 058
  2. RIVOTRIL [Concomitant]
     Dosage: 2 MG, 1X/DAY
  3. PREDNISONE [Concomitant]
     Dosage: 5 MG, 1X/DAY
  4. LOSARTAN [Concomitant]
     Dosage: 50 MG, 1X/DAY
  5. AMLODIPINE [Concomitant]
     Dosage: 25 MG, 1X/DAY
  6. HYDROCHLOROTHIAZIDE [Concomitant]
     Dosage: 12.5 MG, 1X/DAY

REACTIONS (3)
  - Suicide attempt [Unknown]
  - Depression [Not Recovered/Not Resolved]
  - Nervousness [Unknown]
